FAERS Safety Report 5032811-6 (Version None)
Quarter: 2006Q2

REPORT INFORMATION
  Report Type: 
  Country: None (occurrence: None)
  Receive Date: 20060620
  Receipt Date: 20060608
  Transmission Date: 20061013
  Serious: Yes (Death)
  Sender: FDA-Public Use
  Company Number: 163-20785-06060308

PATIENT
  Age: 56 Year
  Sex: Male

DRUGS (1)
  1. THALOMID [Suspect]
     Indication: MYELOFIBROSIS
     Dosage: 50 MG, DAILY, ORAL
     Route: 048
     Dates: start: 20050628, end: 20060101

REACTIONS (1)
  - ACUTE RESPIRATORY DISTRESS SYNDROME [None]
